FAERS Safety Report 9346996 (Version 2)
Quarter: 2013Q3

REPORT INFORMATION
  Report Type: Spontaneous
  Country: JP (occurrence: JP)
  Receive Date: 20130613
  Receipt Date: 20130805
  Transmission Date: 20140515
  Serious: Yes (Death, Other)
  Sender: FDA-Public Use
  Company Number: PHHY2013JP060056

PATIENT
  Sex: Female
  Weight: 46 kg

DRUGS (11)
  1. GEMCITABINE [Suspect]
     Indication: GALLBLADDER CANCER
  2. CISPLATIN [Suspect]
     Indication: GALLBLADDER CANCER
  3. IMIPENEM+CILASTATIN SODIUM [Suspect]
     Indication: PYREXIA
  4. CEFTAZIDIME [Suspect]
  5. CEFTRIAXONE [Suspect]
     Indication: PYREXIA
  6. VOLTAREN [Suspect]
     Indication: PYREXIA
     Dosage: 25 MG, UNK
     Route: 054
     Dates: start: 20100709, end: 20100814
  7. CEFOPERAZONE SODIUM W/SULBACTAM [Suspect]
  8. PREDONINE [Concomitant]
     Dosage: 90 MG, UNK
     Route: 048
     Dates: start: 20100714, end: 20100715
  9. PREDONINE [Concomitant]
     Dosage: 90 MG, UNK
     Route: 042
     Dates: start: 20100716, end: 20100717
  10. PREDNISOLONE [Concomitant]
     Dosage: 90 MG, UNK
     Route: 048
     Dates: start: 20100718
  11. PREDNISOLONE [Concomitant]
     Dosage: 45 MG, UNK
     Route: 048
     Dates: end: 20100725

REACTIONS (8)
  - Cardio-respiratory arrest [Fatal]
  - Gallbladder cancer [Unknown]
  - Malignant neoplasm progression [Unknown]
  - Gastric ulcer [Recovering/Resolving]
  - Vomiting [Recovering/Resolving]
  - Malaise [Unknown]
  - Oedema [Not Recovered/Not Resolved]
  - Drug ineffective [Unknown]
